FAERS Safety Report 4424036-X (Version None)
Quarter: 2004Q3

REPORT INFORMATION
  Report Type: 
  Country: None (occurrence: None)
  Receive Date: 20040805
  Receipt Date: 20040727
  Transmission Date: 20050211
  Serious: Yes (Hospitalization)
  Sender: FDA-Public Use
  Company Number: GBWYE938329JUL04

PATIENT
  Age: 1 Year
  Sex: Male

DRUGS (2)
  1. CHILDREN'S ADVIL [Suspect]
     Indication: PYREXIA
     Dosage: MAXIMUM 6 DOSES 50.0 MG/2.5ML ORAL
     Route: 048
  2. ACETAMINOPHEN [Concomitant]

REACTIONS (13)
  - ANOREXIA [None]
  - BLOOD GLUCOSE INCREASED [None]
  - FLUID INTAKE REDUCED [None]
  - HYPERKALAEMIA [None]
  - ISCHAEMIA [None]
  - LETHARGY [None]
  - PERITONEAL DIALYSIS [None]
  - RENAL CORTICAL NECROSIS [None]
  - RENAL DISORDER [None]
  - RENAL FAILURE [None]
  - RENAL TUBULAR NECROSIS [None]
  - RESPIRATORY SYNCYTIAL VIRUS INFECTION [None]
  - URINE OUTPUT DECREASED [None]
